FAERS Safety Report 26082910 (Version 1)
Quarter: 2025Q4

REPORT INFORMATION
  Report Type: Spontaneous
  Country: US (occurrence: US)
  Receive Date: 20251124
  Receipt Date: 20251124
  Transmission Date: 20260117
  Serious: Yes (Other)
  Sender: BRISTOL-MYERS SQUIBB COMPANY
  Company Number: US-BRISTOL-MYERS SQUIBB COMPANY-2025-158311

PATIENT
  Age: 35 Year
  Sex: Female
  Weight: 73.48 kg

DRUGS (5)
  1. ORENCIA [Suspect]
     Active Substance: ABATACEPT
     Indication: Rheumatoid arthritis
     Dosage: EVERY WEEK ON TUESDAY
     Route: 058
  2. ORENCIA [Suspect]
     Active Substance: ABATACEPT
     Route: 058
  3. NAPROXEN [Concomitant]
     Active Substance: NAPROXEN
     Indication: Arthritis
  4. ATORVASTATIN [Concomitant]
     Active Substance: ATORVASTATIN
     Indication: Blood cholesterol
  5. FENOFIBRATE [Concomitant]
     Active Substance: FENOFIBRATE
     Indication: Blood cholesterol

REACTIONS (3)
  - Device issue [Unknown]
  - Device breakage [Unknown]
  - Diabetes mellitus [Unknown]

NARRATIVE: CASE EVENT DATE: 20250601
